FAERS Safety Report 12069624 (Version 1)
Quarter: 2016Q1

REPORT INFORMATION
  Report Type: Spontaneous
  Country: US (occurrence: US)
  Receive Date: 20160211
  Receipt Date: 20160211
  Transmission Date: 20160526
  Serious: No
  Sender: FDA-Public Use
  Company Number: US-PAR PHARMACEUTICAL, INC-2014SCPR009556

PATIENT

DRUGS (5)
  1. CABERGOLINE. [Suspect]
     Active Substance: CABERGOLINE
     Dosage: HALF A TABLET, WEEKLY
     Route: 048
     Dates: start: 201410, end: 201411
  2. CABERGOLINE. [Suspect]
     Active Substance: CABERGOLINE
     Indication: HYPOTHALAMO-PITUITARY DISORDER
     Dosage: HALF A TABLET, BIWEEKLY
     Route: 048
     Dates: start: 201408, end: 201409
  3. LISINOPRIL. [Concomitant]
     Active Substance: LISINOPRIL
     Indication: PRODUCT USED FOR UNKNOWN INDICATION
     Dosage: 10 MG, UNKNOWN
     Route: 048
  4. IBUPROFEN. [Suspect]
     Active Substance: IBUPROFEN
     Indication: PRODUCT USED FOR UNKNOWN INDICATION
     Dosage: 400 MG, UNKNOWN
     Route: 048
  5. XANAX [Concomitant]
     Active Substance: ALPRAZOLAM
     Indication: PRODUCT USED FOR UNKNOWN INDICATION
     Dosage: 0.5 MG, UNKNOWN
     Route: 048

REACTIONS (1)
  - Hot flush [Not Recovered/Not Resolved]

NARRATIVE: CASE EVENT DATE: 201408
